FAERS Safety Report 5542326-4 (Version None)
Quarter: 2007Q4

REPORT INFORMATION
  Report Type: 
  Country: None (occurrence: None)
  Receive Date: 20071210
  Receipt Date: 20071205
  Transmission Date: 20080405
  Serious: Yes (Life-Threatening)
  Sender: FDA-Public Use
  Company Number: IN-ASTRAZENECA-2007AP07735

PATIENT
  Age: 65 Year
  Sex: Female
  Weight: 70 kg

DRUGS (3)
  1. SENSORCAINE HEAVY [Suspect]
     Indication: ANAESTHESIA
     Route: 037
  2. ADRENALINE [Concomitant]
     Indication: ANAESTHESIA
     Dosage: 0.1CC
  3. STEROIDS [Concomitant]

REACTIONS (4)
  - APHONIA [None]
  - BRADYCARDIA [None]
  - HYPOTENSION [None]
  - SOMNOLENCE [None]
